FAERS Safety Report 5287548-5 (Version None)
Quarter: 2007Q1

REPORT INFORMATION
  Report Type: 
  Country: None (occurrence: None)
  Receive Date: 20070126
  Receipt Date: 20061103
  Transmission Date: 20070707
  Serious: No
  Sender: FDA-Public Use
  Company Number: 2006CT000893

PATIENT
  Age: 22 Year
  Sex: Female
  Weight: 50 kg

DRUGS (13)
  1. VENTAVIS [Suspect]
     Indication: PULMONARY HYPERTENSION
     Dosage: SEE IMAGE
     Route: 055
     Dates: start: 20060728, end: 20060901
  2. VENTAVIS [Suspect]
     Indication: PULMONARY HYPERTENSION
     Dosage: SEE IMAGE
     Route: 055
     Dates: start: 20060901
  3. PREDNISONE TAB [Concomitant]
  4. CELLCEPT [Concomitant]
  5. ATIVAN [Concomitant]
  6. TRAZODONE HCL [Concomitant]
  7. LASIX [Concomitant]
  8. PANTOPRAZOLE [Concomitant]
  9. WARFARIN SODIUM [Concomitant]
  10. DILAUDID [Concomitant]
  11. OXYCODONE HCL [Concomitant]
  12. ZOVIRAX [Concomitant]
  13. VFEND [Concomitant]

REACTIONS (1)
  - MIGRAINE [None]
